FAERS Safety Report 19501743 (Version 1)
Quarter: 2021Q3

REPORT INFORMATION
  Report Type: Spontaneous
  Country: US (occurrence: US)
  Receive Date: 20210705
  Receipt Date: 20210705
  Transmission Date: 20211014
  Serious: Yes (Death)
  Sender: FDA-Public Use
  Company Number: None

PATIENT
  Age: 79 Year
  Sex: Female

DRUGS (2)
  1. COSENTYX [Suspect]
     Active Substance: SECUKINUMAB
     Indication: PSORIATIC ARTHROPATHY
     Dosage: 150MG/ML (2 ML)  OTHER FREQUENCY:Q 6 WEEKS; INJECTION?
     Route: 058
     Dates: start: 20200713, end: 20210629
  2. COSENTYX [Suspect]
     Active Substance: SECUKINUMAB
     Indication: PSORIASIS
     Dosage: 150MG/ML (2 ML)  OTHER FREQUENCY:Q 6 WEEKS; INJECTION?
     Route: 058
     Dates: start: 20200713, end: 20210629

REACTIONS (1)
  - Death [None]

NARRATIVE: CASE EVENT DATE: 20210629
